FAERS Safety Report 21752551 (Version 2)
Quarter: 2023Q1

REPORT INFORMATION
  Report Type: Spontaneous
  Country: US (occurrence: US)
  Receive Date: 20221220
  Receipt Date: 20230123
  Transmission Date: 20230418
  Serious: No
  Sender: FDA-Public Use
  Company Number: US-BRISTOL-MYERS SQUIBB COMPANY-2022-154306

PATIENT
  Age: 72 Year
  Sex: Male
  Weight: 80.74 kg

DRUGS (1)
  1. POMALYST [Suspect]
     Active Substance: POMALIDOMIDE
     Indication: Plasma cell myeloma
     Dosage: FREQ: DAILY FOR 21DAYS
     Route: 048
     Dates: start: 20210901

REACTIONS (2)
  - SARS-CoV-2 test positive [Unknown]
  - Haemoglobin decreased [Unknown]
